FAERS Safety Report 5565262-6 (Version None)
Quarter: 2007Q4

REPORT INFORMATION
  Report Type: 
  Country: None (occurrence: None)
  Receive Date: 20071218
  Receipt Date: 20071212
  Transmission Date: 20080405
  Serious: Yes (Other)
  Sender: FDA-Public Use
  Company Number: PHBS2007BE20833

PATIENT
  Age: 75 Year
  Sex: Female

DRUGS (2)
  1. FEMARA [Suspect]
     Indication: BREAST CANCER
     Dosage: UNK, UNK
     Dates: start: 20060101, end: 20070901
  2. FEMARA [Suspect]
     Dates: start: 20071101

REACTIONS (3)
  - BALANCE DISORDER [None]
  - DEHYDROEPIANDROSTERONE DECREASED [None]
  - VESTIBULAR DISORDER [None]
